FAERS Safety Report 8933691 (Version 8)
Quarter: 2013Q4

REPORT INFORMATION
  Report Type: Report from Study
  Country: CA (occurrence: CA)
  Receive Date: 20121129
  Receipt Date: 20131121
  Transmission Date: 20140711
  Serious: Yes (Death, Hospitalization, Other)
  Sender: FDA-Public Use
  Company Number: PHHY2012CA108736

PATIENT
  Age: 65 Year
  Sex: Female

DRUGS (1)
  1. SANDOSTATIN LAR [Suspect]
     Indication: ACROMEGALY
     Dosage: 40 MG, ONCE A MONTH
     Route: 030
     Dates: start: 20120118, end: 20131022

REACTIONS (15)
  - Death [Fatal]
  - Fall [Recovered/Resolved]
  - Eye injury [Recovered/Resolved]
  - Periorbital contusion [Recovered/Resolved]
  - Eye swelling [Recovered/Resolved]
  - Limb injury [Recovered/Resolved]
  - Pain [Recovered/Resolved]
  - Loss of consciousness [Unknown]
  - Diabetes mellitus inadequate control [Recovered/Resolved]
  - Hypoglycaemia [Unknown]
  - Cataract [Recovered/Resolved]
  - Syncope [Unknown]
  - Vision blurred [Unknown]
  - Diplopia [Unknown]
  - Diarrhoea [Unknown]
